FAERS Safety Report 24767249 (Version 1)
Quarter: 2024Q4

REPORT INFORMATION
  Report Type: Spontaneous
  Country: JP (occurrence: JP)
  Receive Date: 20241223
  Receipt Date: 20241223
  Transmission Date: 20250114
  Serious: Yes (Other)
  Sender: BAXTER
  Company Number: JP-shionogi-202400003983

PATIENT
  Age: 75 Year
  Sex: Female

DRUGS (5)
  1. CYCLOPHOSPHAMIDE [Suspect]
     Active Substance: CYCLOPHOSPHAMIDE
     Indication: Lymphoma
     Dosage: ENDOXAN, R-CHOP, 8 CYCLES
     Route: 065
  2. PREDONINE [Suspect]
     Active Substance: PREDNISOLONE
     Indication: Lymphoma
     Dosage: R-CHOP, 8 CYCLES
     Route: 065
  3. RITUXIMAB [Concomitant]
     Active Substance: RITUXIMAB
     Indication: Lymphoma
     Dosage: R-CHOP, 8 CYCLES
     Route: 065
  4. DOXORUBICIN [Concomitant]
     Active Substance: DOXORUBICIN
     Indication: Lymphoma
     Dosage: R-CHOP, 8 CYCLES
     Route: 065
  5. VINCRISTINE [Concomitant]
     Active Substance: VINCRISTINE
     Indication: Lymphoma
     Dosage: R-CHOP, 8 CYCLES
     Route: 065

REACTIONS (7)
  - Tumour rupture [Recovering/Resolving]
  - Abdominal pain [Recovering/Resolving]
  - Blood pressure decreased [Recovering/Resolving]
  - Anaemia [Recovering/Resolving]
  - Intra-abdominal haemorrhage [Recovering/Resolving]
  - Arterial haemorrhage [Recovering/Resolving]
  - Tumour haemorrhage [Recovering/Resolving]
